FAERS Safety Report 11025126 (Version 1)
Quarter: 2015Q2

REPORT INFORMATION
  Report Type: Report from Study
  Country: JP (occurrence: None)
  Receive Date: 20150410
  Receipt Date: 20150410
  Transmission Date: 20150821
  Serious: Yes (Other)
  Sender: FDA-Public Use
  Company Number: DEP_02650_2015

PATIENT
  Age: 78 Year
  Sex: Male
  Weight: 63 kg

DRUGS (7)
  1. MAGMITT [Concomitant]
     Active Substance: MAGNESIUM OXIDE
  2. TAPENTA (TAPENTADOL) 50 MG [Suspect]
     Active Substance: TAPENTADOL
     Indication: CANCER PAIN
     Route: 048
     Dates: start: 20150121, end: 20150127
  3. OXYCONTIN [Concomitant]
     Active Substance: OXYCODONE HYDROCHLORIDE
  4. LOXONIN [Concomitant]
     Active Substance: LOXOPROFEN SODIUM
  5. SENNOSIDE A+B CALCIUM [Concomitant]
     Active Substance: SENNOSIDES A AND B
  6. OXYNORM [Concomitant]
     Active Substance: OXYCODONE HYDROCHLORIDE
  7. TAKEPRON [Concomitant]
     Active Substance: LANSOPRAZOLE

REACTIONS (2)
  - Delirium [None]
  - Constipation [None]

NARRATIVE: CASE EVENT DATE: 20150121
